APPROVED DRUG PRODUCT: PANIXINE DISPERDOSE
Active Ingredient: CEPHALEXIN
Strength: EQ 125MG BASE
Dosage Form/Route: TABLET, FOR SUSPENSION;ORAL
Application: A065100 | Product #002
Applicant: RANBAXY LABORATORIES LTD
Approved: Sep 11, 2003 | RLD: No | RS: No | Type: DISCN